FAERS Safety Report 8625907-0 (Version None)
Quarter: 2012Q3

REPORT INFORMATION
  Report Type: 
  Country: None (occurrence: None)
  Receive Date: 20120827
  Receipt Date: 20120822
  Transmission Date: 20120928
  Serious: Yes (Death)
  Sender: FDA-Public Use
  Company Number: CA-ROCHE-1106868

PATIENT
  Age: 73 Year

DRUGS (1)
  1. AVASTIN [Suspect]
     Indication: COLORECTAL CANCER
     Dosage: UNKNOWN
     Dates: start: 20120524, end: 20120617

REACTIONS (1)
  - DEATH [None]
